FAERS Safety Report 7472015-0 (Version None)
Quarter: 2011Q2

REPORT INFORMATION
  Report Type: 
  Country: None (occurrence: None)
  Receive Date: 20110511
  Receipt Date: 20100924
  Transmission Date: 20111010
  Serious: No
  Sender: FDA-Public Use
  Company Number: A0884146A

PATIENT
  Sex: Female

DRUGS (1)
  1. TYKERB [Suspect]
     Dosage: 1000MG PER DAY
     Route: 065
     Dates: start: 20100811, end: 20100922

REACTIONS (1)
  - RASH [None]
